FAERS Safety Report 5712539-7 (Version None)
Quarter: 2008Q2

REPORT INFORMATION
  Report Type: 
  Country: None (occurrence: None)
  Receive Date: 20080418
  Receipt Date: 20080407
  Transmission Date: 20081010
  Serious: Yes (Other)
  Sender: FDA-Public Use
  Company Number: CHPA2008US06019

PATIENT
  Age: 59 Year
  Sex: Male

DRUGS (1)
  1. 4 WAY FAST ACTING NASAL SPRAY  (PHENYLEPHRINE) [Suspect]
     Indication: NASAL CONGESTION
     Dosage: 2 SPRAYS, 4-6 TIMES DAILY, NASAL
     Route: 045

REACTIONS (3)
  - DYSPNOEA [None]
  - INTENTIONAL DRUG MISUSE [None]
  - PHARMACEUTICAL PRODUCT COMPLAINT [None]
